FAERS Safety Report 6809438-6 (Version None)
Quarter: 2010Q2

REPORT INFORMATION
  Report Type: 
  Country: None (occurrence: None)
  Receive Date: 20100625
  Receipt Date: 20100614
  Transmission Date: 20101027
  Serious: Yes (Other)
  Sender: FDA-Public Use
  Company Number: A-CH2010-37351

PATIENT
  Age: 6 Month
  Sex: Male
  Weight: 2.5 kg

DRUGS (1)
  1. TRACLEER [Suspect]
     Indication: DRUG EXPOSURE DURING PREGNANCY
     Dosage: TRANSPLACENTAL
     Route: 064
     Dates: start: 20090317, end: 20090529

REACTIONS (3)
  - CAESAREAN SECTION [None]
  - FOETAL ARRHYTHMIA [None]
  - MATERNAL DRUGS AFFECTING FOETUS [None]
